FAERS Safety Report 12160136 (Version 1)
Quarter: 2016Q1

REPORT INFORMATION
  Report Type: Spontaneous
  Country: BR (occurrence: BR)
  Receive Date: 20160308
  Receipt Date: 20160308
  Transmission Date: 20160526
  Serious: Yes (Other)
  Sender: FDA-Public Use
  Company Number: BR-ELI_LILLY_AND_COMPANY-BR201603001182

PATIENT
  Age: 70 Year
  Sex: Male
  Weight: 88 kg

DRUGS (9)
  1. METFORMIN [Concomitant]
     Active Substance: METFORMIN HYDROCHLORIDE
     Indication: DIABETES MELLITUS
     Dosage: 850 MG, BID
     Route: 065
  2. HUMULIN N [Suspect]
     Active Substance: INSULIN HUMAN
     Dosage: 10 IU, EACH EVENING
     Route: 058
     Dates: start: 201602
  3. HUMULIN R [Suspect]
     Active Substance: INSULIN HUMAN
     Indication: DIABETES MELLITUS
     Dosage: 10 IU, EACH EVENING
     Route: 058
     Dates: start: 20160301, end: 20160302
  4. GLIBENCLAMIDA [Concomitant]
     Indication: DIABETES MELLITUS
     Dosage: 5 MG, QD
     Route: 065
  5. HIDROCLOROTIAZIDA [Concomitant]
     Active Substance: HYDROCHLOROTHIAZIDE
     Indication: DIABETES MELLITUS
     Dosage: 25 MG, QD
     Route: 065
  6. LOSARTAN. [Concomitant]
     Active Substance: LOSARTAN
     Indication: DIABETES MELLITUS
     Dosage: 50 MG, BID
     Route: 065
  7. HUMULIN N [Suspect]
     Active Substance: INSULIN HUMAN
     Indication: DIABETES MELLITUS
     Dosage: 20 IU, EACH MORNING
     Route: 058
     Dates: start: 201602
  8. OMEPRAZOLE. [Concomitant]
     Active Substance: OMEPRAZOLE
     Indication: GASTRITIS
     Dosage: 20 MG, QD
     Route: 065
  9. AAS [Concomitant]
     Active Substance: ASPIRIN
     Indication: CARDIOVASCULAR DISORDER
     Dosage: 100 MG, QD
     Route: 065

REACTIONS (4)
  - Hypertension [Not Recovered/Not Resolved]
  - Feeling abnormal [Recovered/Resolved]
  - Wrong drug administered [Unknown]
  - Hypoglycaemia [Recovered/Resolved]

NARRATIVE: CASE EVENT DATE: 20160301
